FAERS Safety Report 5378648-X (Version None)
Quarter: 2007Q3

REPORT INFORMATION
  Report Type: 
  Country: None (occurrence: None)
  Receive Date: 20070702
  Receipt Date: 20070702
  Transmission Date: 20080115
  Serious: Yes (Other)
  Sender: FDA-Public Use
  Company Number: None

PATIENT
  Sex: Male

DRUGS (1)
  1. PROCRIT [Suspect]
     Indication: HEPATITIS C
     Dosage: 40,000 UNITS WEEKLY SQ
     Route: 058
     Dates: start: 20070517

REACTIONS (1)
  - HEADACHE [None]
